FAERS Safety Report 6609548-2 (Version None)
Quarter: 2010Q1

REPORT INFORMATION
  Report Type: 
  Country: None (occurrence: None)
  Receive Date: 20100302
  Receipt Date: 20100222
  Transmission Date: 20100710
  Serious: Yes (Hospitalization)
  Sender: FDA-Public Use
  Company Number: US-JNJFOC-20100210417

PATIENT
  Sex: Female
  Weight: 90.72 kg

DRUGS (7)
  1. DURAGESIC-100 [Suspect]
     Indication: BACK PAIN
     Route: 062
  2. DURAGESIC-100 [Suspect]
     Route: 062
  3. DURAGESIC-100 [Suspect]
     Route: 062
  4. FENTANYL CITRATE [Suspect]
     Indication: BACK PAIN
     Route: 062
  5. PROZAC [Concomitant]
     Indication: DEPRESSION
     Route: 048
  6. XANAX [Concomitant]
     Indication: ANXIETY
     Route: 048
  7. XANAX [Concomitant]
     Indication: PANIC ATTACK
     Route: 048

REACTIONS (4)
  - DEPRESSION [None]
  - DIABETES MELLITUS [None]
  - DRUG EFFECT DECREASED [None]
  - INTERVERTEBRAL DISC DISORDER [None]
